FAERS Safety Report 9158013 (Version 1)
Quarter: 2013Q1

REPORT INFORMATION
  Report Type: Spontaneous
  Country: TR (occurrence: None)
  Receive Date: 20130213
  Receipt Date: 20130213
  Transmission Date: 20140127
  Serious: Yes (Other)
  Sender: FDA-Public Use
  Company Number: 2013P1001882

PATIENT
  Age: 60 Year
  Sex: 0

DRUGS (3)
  1. HEPARIN [Suspect]
     Indication: CARDIAC VALVE REPLACEMENT COMPLICATION
  2. WARFARIN [Concomitant]
  3. TISSUE-TYPE PLASMINOGEN ACTIVATOR [Concomitant]

REACTIONS (2)
  - Heparin-induced thrombocytopenia [None]
  - Cardiac valve replacement complication [None]
